FAERS Safety Report 5170172-2 (Version None)
Quarter: 2006Q4

REPORT INFORMATION
  Report Type: 
  Country: None (occurrence: None)
  Receive Date: 20061204
  Receipt Date: 20061122
  Transmission Date: 20070319
  Serious: Yes (Death)
  Sender: FDA-Public Use
  Company Number: 2006145581

PATIENT
  Sex: 0

DRUGS (2)
  1. SERTRALINE [Suspect]
  2. TRAZODONE HCL [Suspect]

REACTIONS (1)
  - POISONING [None]
